FAERS Safety Report 6970465-X (Version None)
Quarter: 2010Q3

REPORT INFORMATION
  Report Type: 
  Country: None (occurrence: None)
  Receive Date: 20100908
  Receipt Date: 20100831
  Transmission Date: 20110219
  Serious: Yes (Hospitalization)
  Sender: FDA-Public Use
  Company Number: JP-ROCHE-716454

PATIENT
  Sex: Male
  Weight: 51 kg

DRUGS (17)
  1. BEVACIZUMAB [Suspect]
     Indication: RECTAL CANCER METASTATIC
     Route: 041
  2. BEVACIZUMAB [Suspect]
     Route: 041
     Dates: start: 20100701, end: 20100701
  3. CAMPTOSAR [Suspect]
     Indication: LARGE INTESTINE CARCINOMA
     Route: 041
     Dates: start: 20100701, end: 20100701
  4. FLUOROURACIL [Suspect]
     Indication: LARGE INTESTINE CARCINOMA
     Route: 050
  5. FLUOROURACIL [Suspect]
     Dosage: ROUTE: INTRAVENOUS BOLUS
     Route: 050
     Dates: end: 20100603
  6. FLUOROURACIL [Suspect]
     Dosage: ROUTE: INTRAVENOUS DRIP
     Route: 050
     Dates: end: 20100601
  7. FLUOROURACIL [Suspect]
     Dosage: ROUTE: INTRAVENOUS BOLUS
     Route: 050
     Dates: start: 20100701, end: 20100701
  8. FLUOROURACIL [Suspect]
     Dosage: ROUTE: INTRAVENOUS DRIP
     Route: 050
     Dates: start: 20100701, end: 20100703
  9. LEUCOVORIN CALCIUM [Suspect]
     Indication: LARGE INTESTINE CARCINOMA
     Dosage: NOTE: DOSAGE IS UNCERTAIN.
     Route: 041
  10. LEUCOVORIN CALCIUM [Suspect]
     Dosage: NOTE: DOSAGE IS UNCERTAIN.
     Route: 041
     Dates: end: 20100603
  11. LEUCOVORIN CALCIUM [Suspect]
     Route: 041
     Dates: start: 20100701, end: 20100701
  12. ELPLAT [Concomitant]
     Dosage: NOTE: DOSAGE IS UNCERTAIN.
     Route: 042
  13. NORVASC [Concomitant]
     Route: 048
  14. SEROQUEL [Concomitant]
     Route: 048
  15. RESLIN [Concomitant]
     Route: 048
  16. FLIVAS [Concomitant]
     Route: 048
  17. DAI-KENCHU-TO [Concomitant]
     Route: 048

REACTIONS (7)
  - ASCITES [None]
  - BACTERIAL SEPSIS [None]
  - C-REACTIVE PROTEIN INCREASED [None]
  - DIARRHOEA [None]
  - DIZZINESS [None]
  - MALAISE [None]
  - PYREXIA [None]
